FAERS Safety Report 13975637 (Version 7)
Quarter: 2018Q3

REPORT INFORMATION
  Report Type: Report from Study
  Country: US (occurrence: US)
  Receive Date: 20170915
  Receipt Date: 20180706
  Transmission Date: 20181010
  Serious: No
  Sender: FDA-Public Use
  Company Number: US-AMGEN-USASL2017139491

PATIENT
  Age: 14 Year
  Sex: Female
  Weight: 64.85 kg

DRUGS (3)
  1. ENBREL [Suspect]
     Active Substance: ETANERCEPT
     Dosage: 50 MG, QWK
     Route: 065
  2. ENBREL [Suspect]
     Active Substance: ETANERCEPT
     Dosage: UNK
     Route: 065
  3. ENBREL [Suspect]
     Active Substance: ETANERCEPT
     Indication: PSORIASIS
     Dosage: 50 MG, QWK
     Route: 065
     Dates: start: 20170530

REACTIONS (9)
  - Drug effect incomplete [Unknown]
  - Weight increased [Unknown]
  - Depression [Unknown]
  - Off label use [Unknown]
  - Injection site vesicles [Unknown]
  - Adverse reaction [Recovered/Resolved]
  - Muscle strain [Unknown]
  - Myalgia [Unknown]
  - Injection site haemorrhage [Unknown]

NARRATIVE: CASE EVENT DATE: 2017
